FAERS Safety Report 23403446 (Version 1)
Quarter: 2024Q1

REPORT INFORMATION
  Report Type: Spontaneous
  Country: DE (occurrence: DE)
  Receive Date: 20240116
  Receipt Date: 20240116
  Transmission Date: 20240410
  Serious: Yes (Other)
  Sender: FDA-Public Use
  Company Number: DE-UCBSA-2024001309

PATIENT
  Age: 77 Year
  Sex: Female

DRUGS (1)
  1. EVENITY [Suspect]
     Active Substance: ROMOSOZUMAB-AQQG
     Indication: Osteoporosis
     Dosage: 210 MILLIGRAM, (EVERY 30 DAY)
     Route: 065
     Dates: start: 202201

REACTIONS (2)
  - Hip fracture [Not Recovered/Not Resolved]
  - Arthralgia [Not Recovered/Not Resolved]
